FAERS Safety Report 13925113 (Version 2)
Quarter: 2017Q3

REPORT INFORMATION
  Report Type: Other
  Country: US (occurrence: US)
  Receive Date: 20170831
  Receipt Date: 20170901
  Transmission Date: 20171127
  Serious: No
  Sender: FDA-Public Use
  Company Number: US-RARE DISEASE THERAPEUTICS, INC.-2025374

PATIENT

DRUGS (2)
  1. PURIXAN [Suspect]
     Active Substance: MERCAPTOPURINE
     Indication: OPSOCLONUS MYOCLONUS
  2. PURIXAN [Suspect]
     Active Substance: MERCAPTOPURINE
     Indication: PARANEOPLASTIC SYNDROME

REACTIONS (2)
  - Headache [Unknown]
  - Off label use [None]
